APPROVED DRUG PRODUCT: LENALIDOMIDE
Active Ingredient: LENALIDOMIDE
Strength: 25MG
Dosage Form/Route: CAPSULE;ORAL
Application: A217281 | Product #006 | TE Code: AB
Applicant: NOVUGEN ONCOLOGY SDN BHD
Approved: Sep 11, 2024 | RLD: No | RS: No | Type: RX